FAERS Safety Report 22264356 (Version 1)
Quarter: 2023Q2

REPORT INFORMATION
  Report Type: Spontaneous
  Country: CN (occurrence: CN)
  Receive Date: 20230428
  Receipt Date: 20230428
  Transmission Date: 20230721
  Serious: Yes (Other)
  Sender: FDA-Public Use
  Company Number: None

PATIENT
  Age: 1 Year
  Sex: Male

DRUGS (12)
  1. CYCLOPHOSPHAMIDE [Suspect]
     Active Substance: CYCLOPHOSPHAMIDE
     Indication: Retroperitoneal neoplasm
     Dosage: 0.77 G, QD, DILUTED WITH 200 ML OF SODIUM CHLORIDE
     Route: 041
     Dates: start: 20230404, end: 20230404
  2. CYCLOPHOSPHAMIDE [Suspect]
     Active Substance: CYCLOPHOSPHAMIDE
     Indication: Neuroblastoma
     Dosage: QD, DILUTED WITH SODIUM CHLORIDE
     Route: 041
     Dates: start: 20230405
  3. SODIUM CHLORIDE [Suspect]
     Active Substance: SODIUM CHLORIDE
     Indication: Medication dilution
     Dosage: 200 ML, QD, USED TO DILUTE 0.77 G OF CYCLOPHOSPHAMIDE
     Route: 041
     Dates: start: 20230404, end: 20230404
  4. SODIUM CHLORIDE [Suspect]
     Active Substance: SODIUM CHLORIDE
     Dosage: 10 ML, QD, USED TO DILUTE 9 MG OF DOXORUBICIN HYDROCHLORIDE
     Route: 041
     Dates: start: 20230404, end: 20230404
  5. SODIUM CHLORIDE [Suspect]
     Active Substance: SODIUM CHLORIDE
     Dosage: QD, USED TO DILUTE CYCLOPHOSPHAMIDE
     Route: 041
     Dates: start: 20230405
  6. SODIUM CHLORIDE [Suspect]
     Active Substance: SODIUM CHLORIDE
     Dosage: QD, USED TO DILUTE DOXORUBICIN HYDROCHLORIDE
     Route: 041
     Dates: start: 20230405
  7. DEXTROSE [Suspect]
     Active Substance: DEXTROSE\DEXTROSE MONOHYDRATE
     Indication: Medication dilution
     Dosage: 100 ML, QD, USED TO DILUTE 0.24 MG OF VINCRISTINE SULFATE
     Route: 042
     Dates: start: 20230404, end: 20230404
  8. DEXTROSE [Suspect]
     Active Substance: DEXTROSE\DEXTROSE MONOHYDRATE
     Dosage: QD, USED TO DILUTE VINCRISTINE SULFATE
     Route: 042
     Dates: start: 20230405
  9. DOXORUBICIN HYDROCHLORIDE [Suspect]
     Active Substance: DOXORUBICIN HYDROCHLORIDE
     Indication: Retroperitoneal neoplasm
     Dosage: 9 MG, QD, DILUTED WITH 10 ML OF SODIUM CHLORIDE
     Route: 041
     Dates: start: 20230404, end: 20230404
  10. DOXORUBICIN HYDROCHLORIDE [Suspect]
     Active Substance: DOXORUBICIN HYDROCHLORIDE
     Indication: Neuroblastoma
     Dosage: QD, DILUTED WITH SODIUM CHLORIDE
     Route: 041
     Dates: start: 20230405
  11. VINCRISTINE SULFATE [Suspect]
     Active Substance: VINCRISTINE SULFATE
     Indication: Retroperitoneal neoplasm
     Dosage: 0.24 MG, QD, DILUTED WITH 100 ML OF GLUCOSE
     Route: 042
     Dates: start: 20230404, end: 20230404
  12. VINCRISTINE SULFATE [Suspect]
     Active Substance: VINCRISTINE SULFATE
     Indication: Neuroblastoma
     Dosage: QD, DILUTED WITH GLUCOSE
     Route: 042
     Dates: start: 20230405

REACTIONS (4)
  - Productive cough [Unknown]
  - Vomiting [Recovering/Resolving]
  - Diarrhoea [Unknown]
  - Headache [Unknown]

NARRATIVE: CASE EVENT DATE: 20230405
